FAERS Safety Report 12876239 (Version 1)
Quarter: 2016Q4

REPORT INFORMATION
  Report Type: Spontaneous
  Country: NL (occurrence: NL)
  Receive Date: 20161024
  Receipt Date: 20161024
  Transmission Date: 20170207
  Serious: Yes (Death)
  Sender: FDA-Public Use
  Company Number: NL-AUROBINDO-AUR-APL-2016-12996

PATIENT
  Age: 49 Year
  Sex: Female

DRUGS (1)
  1. PREDNISONE. [Suspect]
     Active Substance: PREDNISONE
     Indication: PRODUCT USED FOR UNKNOWN INDICATION
     Dosage: }20 MG
     Route: 065

REACTIONS (7)
  - Systemic lupus erythematosus [Fatal]
  - Night sweats [Fatal]
  - Dyspnoea [Fatal]
  - Weight decreased [Fatal]
  - Productive cough [Fatal]
  - Histoplasmosis disseminated [Fatal]
  - Pleurisy [Fatal]
